FAERS Safety Report 10171241 (Version 1)
Quarter: 2014Q2

REPORT INFORMATION
  Report Type: Spontaneous
  Country: US (occurrence: None)
  Receive Date: 20140513
  Receipt Date: 20140513
  Transmission Date: 20141212
  Serious: Yes (Hospitalization)
  Sender: FDA-Public Use
  Company Number: None

PATIENT
  Age: 71 Year
  Sex: Male
  Weight: 92.99 kg

DRUGS (1)
  1. BENICAR/HCTZ [Suspect]
     Indication: COELIAC DISEASE
     Dosage: ONCE?~ 6 YEARS

REACTIONS (1)
  - Diarrhoea [None]
